FAERS Safety Report 11519865 (Version 1)
Quarter: 2015Q3

REPORT INFORMATION
  Report Type: Spontaneous
  Country: US (occurrence: None)
  Receive Date: 20150917
  Receipt Date: 20150917
  Transmission Date: 20151125
  Serious: Yes (Hospitalization, Disabling, Other)
  Sender: FDA-Public Use
  Company Number: None

PATIENT
  Age: 55 Year
  Sex: Female
  Weight: 102.97 kg

DRUGS (15)
  1. CHROMIUM PICOLINATE [Concomitant]
     Active Substance: CHROMIUM PICOLINATE
  2. PROAIR HFA [Concomitant]
     Active Substance: ALBUTEROL SULFATE
  3. TRAMADOL HCL [Suspect]
     Active Substance: TRAMADOL HYDROCHLORIDE
     Indication: PROCEDURAL PAIN
     Dosage: 50 MG TABLET?1 TABLET?EVERY 4-6 HOURS FOR PAIN?ORAL
     Route: 048
     Dates: start: 20150106, end: 20150108
  4. PROVASTATIN SODIUM [Concomitant]
  5. HCTZ [Concomitant]
     Active Substance: HYDROCHLOROTHIAZIDE
  6. METFORMIN HCL [Concomitant]
     Active Substance: METFORMIN HYDROCHLORIDE
  7. CALCIUM [Concomitant]
     Active Substance: CALCIUM
  8. LISINOPRIL. [Concomitant]
     Active Substance: LISINOPRIL
  9. IBUPROFEN. [Concomitant]
     Active Substance: IBUPROFEN
  10. COMPLETE MULTIVITAMIN [Concomitant]
     Active Substance: VITAMINS
  11. VITAMIN C [Concomitant]
     Active Substance: ASCORBIC ACID
  12. RANEXA [Concomitant]
     Active Substance: RANOLAZINE
  13. QVAR [Concomitant]
     Active Substance: BECLOMETHASONE DIPROPIONATE
  14. SPIRIVA [Concomitant]
     Active Substance: TIOTROPIUM BROMIDE MONOHYDRATE
  15. MAGNESIUM [Concomitant]
     Active Substance: MAGNESIUM

REACTIONS (11)
  - Abdominal pain upper [None]
  - Palpitations [None]
  - Dizziness [None]
  - Nausea [None]
  - Vomiting [None]
  - Confusional state [None]
  - Hypopnoea [None]
  - Agitation [None]
  - Altered state of consciousness [None]
  - Nervousness [None]
  - Dyspnoea [None]

NARRATIVE: CASE EVENT DATE: 20150106
